FAERS Safety Report 8030966-2 (Version None)
Quarter: 2012Q1

REPORT INFORMATION
  Report Type: 
  Country: None (occurrence: None)
  Receive Date: 20120109
  Receipt Date: 20120103
  Transmission Date: 20120608
  Serious: Yes (Other)
  Sender: FDA-Public Use
  Company Number: US-CELGENEUS-163-21880-12010260

PATIENT
  Sex: Female
  Weight: 66.738 kg

DRUGS (8)
  1. REVLIMID [Suspect]
     Indication: MULTIPLE MYELOMA
     Dosage: 10 MILLIGRAM
     Route: 048
     Dates: start: 20110330, end: 20110401
  2. REVLIMID [Suspect]
     Dosage: 10 MILLIGRAM
     Route: 048
     Dates: start: 20120101
  3. OMEPRAZOLE [Concomitant]
     Route: 065
  4. METPROLOL [Concomitant]
     Route: 065
  5. GEMFIBROZIL [Concomitant]
     Route: 065
  6. PAROXETINE [Concomitant]
     Route: 065
  7. FUROSEMIDE [Concomitant]
     Route: 065
  8. LISINOPRIL [Concomitant]
     Route: 065

REACTIONS (2)
  - SINUSITIS [None]
  - SINUS DISORDER [None]
